FAERS Safety Report 17802987 (Version 1)
Quarter: 2020Q2

REPORT INFORMATION
  Report Type: Spontaneous
  Country: US (occurrence: US)
  Receive Date: 20200519
  Receipt Date: 20200519
  Transmission Date: 20200714
  Serious: Yes (Other)
  Sender: FDA-Public Use
  Company Number: US-PFIZER INC-2020198116

PATIENT
  Age: 52 Year
  Sex: Female
  Weight: 75 kg

DRUGS (4)
  1. IBRANCE [Suspect]
     Active Substance: PALBOCICLIB
     Indication: BREAST CANCER METASTATIC
     Dosage: 125 MG, CYCLIC(EACH DAY FOR 21 DAYS AND THEN OFF FOR A WEEK)
     Route: 048
     Dates: start: 20200422
  2. LETROZOLE. [Concomitant]
     Active Substance: LETROZOLE
     Indication: BREAST CANCER METASTATIC
     Dosage: 2.5 MG, CYCLIC(EACH DAY, 21 DAYS ON 7 DAYS OFF IN SYNC WITH IBRANCE)
     Route: 048
     Dates: start: 20200422
  3. IBRANCE [Suspect]
     Active Substance: PALBOCICLIB
     Dosage: 100 MG, CYCLIC(EACH DAY FOR 21 DAYS AND THEN OFF FOR A WEEK)
     Route: 048
     Dates: start: 20200512
  4. ELIQUIS [Concomitant]
     Active Substance: APIXABAN
     Indication: ANTICOAGULANT THERAPY
     Dosage: 5 MG, DAILY
     Route: 048
     Dates: start: 20200415

REACTIONS (4)
  - Scratch [Unknown]
  - Haemorrhage [Unknown]
  - Blood test abnormal [Unknown]
  - Drug eruption [Unknown]

NARRATIVE: CASE EVENT DATE: 20200512
